FAERS Safety Report 7476026-0 (Version None)
Quarter: 2011Q2

REPORT INFORMATION
  Report Type: 
  Country: None (occurrence: None)
  Receive Date: 20110505
  Receipt Date: 20110429
  Transmission Date: 20111010
  Serious: Yes (Hospitalization)
  Sender: FDA-Public Use
  Company Number: 2010AC000335

PATIENT
  Age: 78 Year
  Sex: Female

DRUGS (13)
  1. CYMBALTA [Concomitant]
  2. ASPIRIN [Concomitant]
  3. DETROL [Concomitant]
  4. DIGOXIN [Suspect]
     Dosage: 0.250 MG; QD; PO
     Route: 048
     Dates: end: 20070901
  5. SYNTHROID [Concomitant]
  6. LISINOPRIL [Concomitant]
  7. BISOPROLOL FUMARATE [Concomitant]
  8. MECLIZINE [Concomitant]
  9. NITROSTAT [Concomitant]
  10. HYDROCHLOROTHIAZIDE [Concomitant]
  11. LOVENOX [Concomitant]
  12. DETROL [Concomitant]
  13. CARTIA XT [Concomitant]

REACTIONS (30)
  - INJURY [None]
  - ELECTROCARDIOGRAM T WAVE INVERSION [None]
  - THROMBOCYTOPENIA [None]
  - GASTROOESOPHAGEAL REFLUX DISEASE [None]
  - FATIGUE [None]
  - BLOOD ALKALINE PHOSPHATASE INCREASED [None]
  - MASS [None]
  - DIZZINESS [None]
  - HEADACHE [None]
  - GALLBLADDER DISORDER [None]
  - SPLENOMEGALY [None]
  - HYPERTONIC BLADDER [None]
  - JAUNDICE [None]
  - SINUSITIS [None]
  - TOXICITY TO VARIOUS AGENTS [None]
  - PANCREATIC CYST [None]
  - CHOLECYSTITIS [None]
  - CEREBRAL ISCHAEMIA [None]
  - ALANINE AMINOTRANSFERASE INCREASED [None]
  - ATRIAL FIBRILLATION [None]
  - PAIN [None]
  - ECONOMIC PROBLEM [None]
  - ASTHENIA [None]
  - RENAL DISORDER [None]
  - PANCREATIC ATROPHY [None]
  - BLADDER DISORDER [None]
  - HEART RATE DECREASED [None]
  - ACCELERATED HYPERTENSION [None]
  - LETHARGY [None]
  - BLOOD BILIRUBIN INCREASED [None]
